FAERS Safety Report 12110943 (Version 2)
Quarter: 2016Q1

REPORT INFORMATION
  Report Type: Spontaneous
  Country: TR (occurrence: TR)
  Receive Date: 20160224
  Receipt Date: 20160226
  Transmission Date: 20160526
  Serious: Yes (Other)
  Sender: FDA-Public Use
  Company Number: TR-ACTAVIS-2016-04277

PATIENT
  Age: 7 Year
  Sex: Female
  Weight: 13.2 kg

DRUGS (3)
  1. PREDNISOLONE. [Concomitant]
     Active Substance: PREDNISOLONE
     Indication: CROHN^S DISEASE
     Dosage: 20 MG, DAILY
     Route: 065
  2. MESALAZINE (UNKNOWN) [Suspect]
     Active Substance: MESALAMINE
     Indication: CROHN^S DISEASE
     Dosage: UNK
     Route: 065
  3. PREDNISOLONE. [Concomitant]
     Active Substance: PREDNISOLONE
     Dosage: 2.5 MG, 1/WEEK
     Route: 065

REACTIONS (2)
  - Condition aggravated [Recovered/Resolved]
  - Drug intolerance [Recovered/Resolved]
